FAERS Safety Report 5241511-9 (Version None)
Quarter: 2007Q1

REPORT INFORMATION
  Report Type: 
  Country: None (occurrence: None)
  Receive Date: 20070220
  Receipt Date: 20070214
  Transmission Date: 20070707
  Serious: Yes (Hospitalization)
  Sender: FDA-Public Use
  Company Number: 200710091BYL

PATIENT
  Age: 68 Year
  Sex: Female

DRUGS (2)
  1. ZOVIRAX [Suspect]
     Dosage: 300MG PER DAY
     Route: 048
     Dates: start: 20070125, end: 20070129
  2. ADALAT [Suspect]
     Indication: HYPERTENSION
     Dosage: 10MG PER DAY
     Route: 048
     Dates: start: 20061228, end: 20070129

REACTIONS (2)
  - HAEMORRHAGE SUBCUTANEOUS [None]
  - PLATELET COUNT DECREASED [None]
